FAERS Safety Report 23346690 (Version 1)
Quarter: 2023Q4

REPORT INFORMATION
  Report Type: Spontaneous
  Country: US (occurrence: None)
  Receive Date: 20231227
  Receipt Date: 20231227
  Transmission Date: 20240110
  Serious: No
  Sender: FDA-Public Use
  Company Number: None

PATIENT
  Age: 60 Year
  Sex: Female
  Weight: 111.58 kg

DRUGS (1)
  1. SIMPONI [Suspect]
     Active Substance: GOLIMUMAB
     Indication: Rheumatoid arthritis
     Dosage: ?INJECT 50MG SUBCUTANEOUSLY ONCE A MONTH AS DIRECTED?
     Route: 058
     Dates: start: 202303

REACTIONS (2)
  - COVID-19 [None]
  - Cough [None]
